FAERS Safety Report 20615196 (Version 1)
Quarter: 2022Q1

REPORT INFORMATION
  Report Type: Spontaneous
  Country: US (occurrence: US)
  Receive Date: 20220321
  Receipt Date: 20220321
  Transmission Date: 20220423
  Serious: No
  Sender: FDA-Public Use
  Company Number: US-GSKCCFUS-Case-01325311_AE-77088

PATIENT
  Sex: Female

DRUGS (1)
  1. BENLYSTA [Suspect]
     Active Substance: BELIMUMAB
     Indication: Systemic lupus erythematosus
     Dosage: UNK, CYC
     Route: 058
     Dates: start: 2021

REACTIONS (3)
  - Injection site pain [Recovered/Resolved]
  - Product dose omission issue [Unknown]
  - Wrong technique in device usage process [Unknown]
